FAERS Safety Report 5719423-3 (Version None)
Quarter: 2008Q2

REPORT INFORMATION
  Report Type: 
  Country: None (occurrence: None)
  Receive Date: 20080428
  Receipt Date: 20080424
  Transmission Date: 20081010
  Serious: Yes (Life-Threatening, Hospitalization)
  Sender: FDA-Public Use
  Company Number: PHHY2008BE06002

PATIENT
  Sex: Male

DRUGS (4)
  1. GLEEVEC [Suspect]
     Indication: CHRONIC MYELOID LEUKAEMIA (IN REMISSION)
     Route: 048
     Dates: start: 20060703, end: 20080303
  2. TAXOTERE [Suspect]
     Indication: GASTRIC CANCER
     Dates: start: 20071126
  3. FLUOROURACIL [Concomitant]
     Indication: GASTRIC ULCER
     Dates: start: 20071126
  4. CISPLATIN [Concomitant]
     Indication: GASTRIC CANCER
     Dates: start: 20071126

REACTIONS (7)
  - FEBRILE NEUTROPENIA [None]
  - HEPATIC FAILURE [None]
  - HEPATIC FUNCTION ABNORMAL [None]
  - HEPATITIS CHOLESTATIC [None]
  - HYPOVOLAEMIC SHOCK [None]
  - PNEUMONIA [None]
  - SEPSIS [None]
